FAERS Safety Report 9335416 (Version 1)
Quarter: 2013Q2

REPORT INFORMATION
  Report Type: Report from Study
  Country: JP (occurrence: JP)
  Receive Date: 20130605
  Receipt Date: 20130605
  Transmission Date: 20140414
  Serious: Yes (Other)
  Sender: FDA-Public Use
  Company Number: JP-009507513-2007-166118-NL

PATIENT
  Age: 29 Year
  Sex: Female
  Weight: 56.8 kg

DRUGS (8)
  1. FOLLITROPIN BETA [Suspect]
     Indication: OVULATION INDUCTION
     Dosage: 150 IU, QD
     Route: 030
     Dates: start: 20070521, end: 20070521
  2. FOLLITROPIN BETA [Suspect]
     Dosage: 150 IU, QD
     Route: 058
     Dates: start: 20070523, end: 20070523
  3. FOLLITROPIN BETA [Suspect]
     Dosage: 150 IU, QD
     Route: 058
     Dates: start: 20070525, end: 20070529
  4. PREGNYL 5000IU [Suspect]
     Indication: ASSISTED FERTILISATION
     Dosage: 10000 IU, ONCE
     Route: 030
     Dates: start: 20070530, end: 20070530
  5. SEROPHENE [Suspect]
     Indication: ASSISTED FERTILISATION
     Dosage: 100 MG, QD
     Route: 048
     Dates: start: 20070521, end: 20070525
  6. PREDONINE [Concomitant]
     Indication: ASSISTED FERTILISATION
     Dosage: 7.5 MG, QD
     Route: 048
     Dates: start: 20070521, end: 20070530
  7. ASPIRIN (+) DIHYDROXYALUMINUM AMINOACETATE (+) MAGNESIUM CARBONATE [Concomitant]
     Indication: ASSISTED FERTILISATION
     Dosage: 81 MG, QD
     Route: 048
     Dates: start: 20070521, end: 20070530
  8. CETROTIDE [Concomitant]
     Indication: ASSISTED FERTILISATION
     Dosage: .25 MG, QD
     Route: 058
     Dates: start: 20070530, end: 20070530

REACTIONS (2)
  - Abortion missed [Recovering/Resolving]
  - Ovarian hyperstimulation syndrome [Recovering/Resolving]
